FAERS Safety Report 5296119-6 (Version None)
Quarter: 2007Q2

REPORT INFORMATION
  Report Type: 
  Country: None (occurrence: None)
  Receive Date: 20070413
  Receipt Date: 20070402
  Transmission Date: 20071010
  Serious: Yes (Hospitalization)
  Sender: FDA-Public Use
  Company Number: PHBS2007JP04921

PATIENT
  Age: 16 Year
  Sex: Male

DRUGS (10)
  1. VOLTAREN [Suspect]
     Indication: PYREXIA
     Dosage: 50 MG/DAY
     Route: 054
     Dates: start: 20070311, end: 20070311
  2. ONON [Concomitant]
     Dates: end: 20070312
  3. CLARITHROMYCIN [Concomitant]
  4. SELBEX [Concomitant]
     Dates: end: 20070312
  5. PL GRAN. [Concomitant]
     Indication: NASOPHARYNGITIS
     Dosage: 3 G/DAY
     Route: 048
     Dates: start: 20070311, end: 20070312
  6. PANSPORIN [Concomitant]
     Indication: VIRAL INFECTION
     Dosage: 3 G/DAY
     Route: 042
     Dates: start: 20070312, end: 20070314
  7. RELENZA [Concomitant]
     Indication: INFLUENZA LIKE ILLNESS
     Dosage: 4 DF/DAY
     Route: 048
     Dates: start: 20070312, end: 20070314
  8. CALONAL [Concomitant]
     Indication: PYREXIA
     Dosage: 1200 MG/DAY
     Route: 048
     Dates: start: 20070312, end: 20070314
  9. ALPINYL [Concomitant]
     Indication: PYREXIA
     Dosage: 1200 MG/DAY
     Route: 054
     Dates: start: 20070312, end: 20070314
  10. MILTAX [Concomitant]
     Indication: BACK PAIN
     Dosage: 2 DF/DAY
     Dates: start: 20070313, end: 20070313

REACTIONS (15)
  - ALANINE AMINOTRANSFERASE INCREASED [None]
  - ASPARTATE AMINOTRANSFERASE INCREASED [None]
  - BLOOD ALKALINE PHOSPHATASE INCREASED [None]
  - BLOOD BILIRUBIN INCREASED [None]
  - BLOOD LACTATE DEHYDROGENASE INCREASED [None]
  - C-REACTIVE PROTEIN INCREASED [None]
  - GLUCOSE-6-PHOSPHATE DEHYDROGENASE DEFICIENCY [None]
  - HAEMATOCRIT DECREASED [None]
  - HAEMATURIA [None]
  - HAEMOGLOBIN DECREASED [None]
  - HAEMOLYTIC ANAEMIA [None]
  - INFLUENZA [None]
  - PLATELET COUNT DECREASED [None]
  - PROTEIN URINE PRESENT [None]
  - PYREXIA [None]
